FAERS Safety Report 6509777-2 (Version None)
Quarter: 2009Q4

REPORT INFORMATION
  Report Type: 
  Country: None (occurrence: None)
  Receive Date: 20091221
  Receipt Date: 20091221
  Transmission Date: 20100525
  Serious: Yes (Death)
  Sender: FDA-Public Use
  Company Number: None

PATIENT
  Sex: Male

DRUGS (2)
  1. AMBIEN [Suspect]
  2. XANAX [Suspect]

REACTIONS (7)
  - ANXIETY [None]
  - ASPHYXIA [None]
  - COMPLETED SUICIDE [None]
  - INSOMNIA [None]
  - PARANOIA [None]
  - PERSONALITY CHANGE [None]
  - SKIN LACERATION [None]
